FAERS Safety Report 4900562-1 (Version None)
Quarter: 2006Q1

REPORT INFORMATION
  Report Type: 
  Country: None (occurrence: None)
  Receive Date: 20060201
  Receipt Date: 20060118
  Transmission Date: 20060701
  Serious: No
  Sender: FDA-Public Use
  Company Number: 2363

PATIENT
  Age: 43 Year
  Sex: Male

DRUGS (6)
  1. CHLOROQUINE PHOSPHATE TABS, 500 MG/WEST-WARD PHARM. [Suspect]
     Indication: OFF LABEL USE
  2. CHLOROQUINE PHOSPHATE TABS, 500 MG/WEST-WARD PHARM. [Suspect]
     Indication: SYSTEMIC LUPUS ERYTHEMATOSUS
  3. SYNTHROID [Concomitant]
  4. ZOCOR [Concomitant]
  5. MINOCYCLINE HCL [Concomitant]
  6. PROTOPIC [Concomitant]

REACTIONS (2)
  - BLOOD CHOLESTEROL INCREASED [None]
  - OFF LABEL USE [None]
